FAERS Safety Report 7116779-4 (Version None)
Quarter: 2010Q4

REPORT INFORMATION
  Report Type: 
  Country: None (occurrence: None)
  Receive Date: 20101122
  Receipt Date: 20101027
  Transmission Date: 20110411
  Serious: Yes (Other)
  Sender: FDA-Public Use
  Company Number: MX-ELI_LILLY_AND_COMPANY-MX201011000508

PATIENT
  Age: 78 Year
  Sex: Female
  Weight: 53 kg

DRUGS (6)
  1. FORTEO [Suspect]
     Indication: BONE DISORDER
     Dosage: 20 UG, DAILY (1/D)
     Route: 065
     Dates: start: 20100801
  2. LEVODOPA [Concomitant]
     Indication: PAIN
     Dosage: UNK, UNKNOWN
     Route: 065
  3. MIRTAZAPINE [Concomitant]
     Dosage: UNK, UNKNOWN
     Route: 065
  4. MELOXICAM [Concomitant]
     Dosage: UNK, UNKNOWN
     Route: 065
     Dates: start: 20101024
  5. CLARITROMYCINE [Concomitant]
     Dosage: UNK, UNKNOWN
     Route: 065
     Dates: start: 20101024
  6. NITROFURANTOIN [Concomitant]
     Dosage: UNK, UNKNOWN
     Route: 065
     Dates: start: 20101024

REACTIONS (12)
  - ANXIETY [None]
  - ARTHRALGIA [None]
  - BURNING SENSATION [None]
  - GASTRIC DISORDER [None]
  - HOT FLUSH [None]
  - HYPOAESTHESIA [None]
  - MOVEMENT DISORDER [None]
  - MUSCLE SPASMS [None]
  - NERVOUSNESS [None]
  - SKIN EXFOLIATION [None]
  - VOMITING [None]
  - WEIGHT DECREASED [None]
